FAERS Safety Report 7568817-2 (Version None)
Quarter: 2011Q2

REPORT INFORMATION
  Report Type: 
  Country: None (occurrence: None)
  Receive Date: 20110623
  Receipt Date: 20110617
  Transmission Date: 20111010
  Serious: Yes (Hospitalization)
  Sender: FDA-Public Use
  Company Number: DE-PFIZER INC-2009152543

PATIENT
  Age: 61 Year
  Sex: Female
  Weight: 101 kg

DRUGS (8)
  1. TORASEMIDE [Concomitant]
     Dosage: UNK
     Route: 048
     Dates: start: 20080327
  2. BISOPROLOL [Concomitant]
     Dosage: UNK
     Route: 048
     Dates: start: 20080123
  3. MARCUMAR [Concomitant]
     Dosage: UNK
     Route: 048
     Dates: start: 20070927
  4. LEVOTHYROXINE SODIUM [Concomitant]
     Dosage: 150 UNK, UNK
     Route: 048
     Dates: start: 20070409
  5. EPLERENONE [Suspect]
     Indication: CARDIAC FAILURE
     Dosage: 12.5 MG, DAILI
     Route: 048
     Dates: start: 20080410, end: 20080508
  6. ATACAND [Concomitant]
     Dosage: UNK
     Route: 048
     Dates: start: 20080327
  7. VIGANTOLETTEN ^MERCK^ [Concomitant]
     Dosage: UNK
     Route: 048
     Dates: start: 20081001
  8. EPLERENONE [Suspect]
     Dosage: 25 MG, DAILY
     Route: 048
     Dates: start: 20080509, end: 20100105

REACTIONS (1)
  - TYPE 2 DIABETES MELLITUS [None]
